FAERS Safety Report 7736557-2 (Version None)
Quarter: 2011Q3

REPORT INFORMATION
  Report Type: 
  Country: None (occurrence: None)
  Receive Date: 20110817
  Receipt Date: 20110520
  Transmission Date: 20111222
  Serious: Yes (Hospitalization, Other)
  Sender: FDA-Public Use
  Company Number: 201110408

PATIENT
  Age: 31 Year
  Sex: Male

DRUGS (1)
  1. LIORESAL [Suspect]
     Indication: MUSCLE SPASTICITY
     Dosage: UNK MCG, DAILY, INTRATHECAL
     Route: 037

REACTIONS (9)
  - VISION BLURRED [None]
  - THERAPEUTIC RESPONSE DECREASED [None]
  - HOSPITALISATION [None]
  - MUSCULOSKELETAL DISCOMFORT [None]
  - ASTHENIA [None]
  - DYSPNOEA [None]
  - HEADACHE [None]
  - MUSCLE SPASTICITY [None]
  - DYSKINESIA [None]
